FAERS Safety Report 6085109-1 (Version None)
Quarter: 2009Q1

REPORT INFORMATION
  Report Type: 
  Country: None (occurrence: None)
  Receive Date: 20090220
  Receipt Date: 20090218
  Transmission Date: 20090719
  Serious: Yes (Other)
  Sender: FDA-Public Use
  Company Number: US-ASTRAZENECA-2009UW04558

PATIENT
  Age: 47 Year
  Sex: Female

DRUGS (7)
  1. SEROQUEL [Suspect]
     Indication: BIPOLAR DISORDER
     Route: 048
  2. LAMOTRIGINE [Suspect]
     Indication: BIPOLAR DISORDER
     Route: 048
  3. LAMOTRIGINE [Suspect]
     Route: 048
  4. LAMOTRIGINE [Suspect]
     Route: 048
     Dates: end: 20090205
  5. ABILIFY [Concomitant]
  6. CLONAZEPAM [Concomitant]
  7. CARBAMAZEPINE [Concomitant]

REACTIONS (2)
  - HYPOMANIA [None]
  - WEIGHT INCREASED [None]
